FAERS Safety Report 5718278-0 (Version None)
Quarter: 2008Q2

REPORT INFORMATION
  Report Type: 
  Country: None (occurrence: None)
  Receive Date: 20080425
  Receipt Date: 20071024
  Transmission Date: 20081010
  Serious: No
  Sender: FDA-Public Use
  Company Number: US-ASTRAZENECA-2007UW24775

PATIENT
  Age: 12 Year
  Sex: Male
  Weight: 56.7 kg

DRUGS (3)
  1. ZOMIG [Suspect]
     Indication: MIGRAINE
     Route: 048
  2. CIMETIDINE [Concomitant]
  3. INDERAL [Concomitant]

REACTIONS (2)
  - NAUSEA [None]
  - VOMITING [None]
